FAERS Safety Report 10543864 (Version 1)
Quarter: 2014Q4

REPORT INFORMATION
  Report Type: Spontaneous
  Country: US (occurrence: None)
  Receive Date: 20141010
  Receipt Date: 20141010
  Transmission Date: 20150529
  Serious: Yes (Hospitalization)
  Sender: FDA-Public Use
  Company Number: 163-POMAL-14072332

PATIENT
  Age: 62 Year
  Sex: Female
  Weight: 91.63 kg

DRUGS (1)
  1. POMALYST [Suspect]
     Active Substance: POMALIDOMIDE
     Indication: PLASMA CELL MYELOMA
     Dosage: 4 MG, 21 IN 21 D, PO
     Route: 048
     Dates: start: 201306, end: 2013

REACTIONS (3)
  - Pneumonia [None]
  - Urinary tract infection [None]
  - Full blood count decreased [None]

NARRATIVE: CASE EVENT DATE: 2014
